FAERS Safety Report 8159170-4 (Version None)
Quarter: 2012Q1

REPORT INFORMATION
  Report Type: 
  Country: None (occurrence: None)
  Receive Date: 20120223
  Receipt Date: 20120210
  Transmission Date: 20120608
  Serious: Yes (Other)
  Sender: FDA-Public Use
  Company Number: US-JNJFOC-20120203696

PATIENT
  Sex: Female

DRUGS (13)
  1. PAXIL [Concomitant]
  2. PROTONIX [Concomitant]
  3. SUBOXONE [Concomitant]
  4. INVEGA [Interacting]
     Indication: DRUG THERAPY
  5. RIBAVIRIN [Concomitant]
     Indication: HEPATITIS C
     Route: 048
  6. SYNTHROID [Concomitant]
  7. PHENERGAN [Concomitant]
  8. MULTI-VITAMINS [Concomitant]
  9. RIBAVIRIN [Concomitant]
     Route: 048
     Dates: end: 20120125
  10. INCIVEK [Suspect]
     Indication: HEPATITIS C
     Route: 048
     Dates: end: 20120125
  11. PEGASYS [Suspect]
     Indication: HEPATITIS C
     Route: 048
     Dates: end: 20120125
  12. ADDERALL 5 [Concomitant]
  13. LISINOPRIL [Concomitant]

REACTIONS (8)
  - HYPORESPONSIVE TO STIMULI [None]
  - CONFUSIONAL STATE [None]
  - SOMNOLENCE [None]
  - LETHARGY [None]
  - MANIA [None]
  - RENAL FAILURE [None]
  - DRUG INTERACTION [None]
  - DEHYDRATION [None]
